FAERS Safety Report 15916960 (Version 1)
Quarter: 2019Q1

REPORT INFORMATION
  Report Type: Spontaneous
  Country: US (occurrence: US)
  Receive Date: 20190205
  Receipt Date: 20190205
  Transmission Date: 20190417
  Serious: Yes (Other)
  Sender: FDA-Public Use
  Company Number: US-AUROBINDO-AUR-APL-2019-004780

PATIENT

DRUGS (2)
  1. OXYCODONE [Suspect]
     Active Substance: OXYCODONE
     Indication: CROHN^S DISEASE
     Dosage: UNK10-325 MG EVERY 6 HOURS
     Route: 065
  2. HEROIN [Suspect]
     Active Substance: DIAMORPHINE
     Indication: PRODUCT USED FOR UNKNOWN INDICATION
     Dosage: UNK
     Route: 065

REACTIONS (6)
  - Vaginal discharge [Recovered/Resolved]
  - Abdominal pain lower [Recovered/Resolved]
  - Drug use disorder [Unknown]
  - Off label use [Unknown]
  - HIV test positive [Unknown]
  - Exposure during pregnancy [Unknown]
